FAERS Safety Report 9204020 (Version 1)
Quarter: 2013Q1

REPORT INFORMATION
  Report Type: Spontaneous
  Country: US (occurrence: None)
  Receive Date: 20120709
  Receipt Date: 20120709
  Transmission Date: 20140127
  Serious: Yes (Hospitalization)
  Sender: FDA-Public Use
  Company Number: PHHY2011US54434

PATIENT
  Age: 62 Year
  Sex: Male

DRUGS (2)
  1. GLEEVEC [Suspect]
     Indication: LEUKAEMIA
     Route: 048
     Dates: start: 201105
  2. INTRON-A (INTERFERON ALFA-2B) [Suspect]

REACTIONS (2)
  - Asthenia [None]
  - Decreased appetite [None]
